FAERS Safety Report 8059869-4 (Version None)
Quarter: 2012Q1

REPORT INFORMATION
  Report Type: 
  Country: None (occurrence: None)
  Receive Date: 20120120
  Receipt Date: 20120105
  Transmission Date: 20120608
  Serious: Yes (Hospitalization)
  Sender: FDA-Public Use
  Company Number: US-MYLANLABS-2011S1000185

PATIENT
  Age: 11 Year
  Sex: Male

DRUGS (45)
  1. CEFTRIAXONE [Suspect]
     Indication: INFECTION
     Route: 041
     Dates: start: 20100630, end: 20100707
  2. TRICLOFOS SODIUM [Suspect]
     Route: 048
     Dates: start: 20100628, end: 20100705
  3. DEXAMETHASONE [Suspect]
     Route: 042
     Dates: start: 20100617, end: 20100622
  4. OFLOXACIN [Suspect]
     Route: 047
     Dates: start: 20100728, end: 20100729
  5. DIAZEPAM [Suspect]
     Route: 048
     Dates: start: 20100702, end: 20100722
  6. BIOFERMIN T [Suspect]
     Route: 048
     Dates: start: 20100711, end: 20100718
  7. GLYCEROL 2.6% [Suspect]
     Route: 041
     Dates: start: 20100617, end: 20100618
  8. GLYCEROL 2.6% [Suspect]
     Indication: CONSTIPATION
     Route: 054
     Dates: start: 20100621
  9. CALCIUM GLUCONATE [Suspect]
     Route: 041
     Dates: start: 20100621, end: 20100621
  10. NICARDIPINE HYDROCHLORIDE [Suspect]
     Route: 041
     Dates: start: 20100622, end: 20100624
  11. FLURBIPROFEN [Suspect]
     Route: 041
     Dates: start: 20100709, end: 20100709
  12. ETIZOLAM [Suspect]
     Dosage: UNIT CONT:1
     Route: 048
     Dates: start: 20100701, end: 20100701
  13. CEFAZOLIN [Suspect]
     Route: 041
     Dates: start: 20100622, end: 20100624
  14. PHENOBARBITAL TAB [Suspect]
     Route: 048
     Dates: start: 20100622, end: 20100709
  15. AMPICILLIN [Suspect]
     Route: 041
     Dates: start: 20100715, end: 20100716
  16. EPINEPHRINE [Suspect]
     Route: 041
     Dates: start: 20100621, end: 20100621
  17. FENTANYL [Suspect]
     Route: 041
     Dates: start: 20100621, end: 20100708
  18. DEXPANTHENOL [Suspect]
     Route: 041
     Dates: start: 20100604, end: 20100705
  19. HYDROXYZINE HCL [Suspect]
     Route: 041
     Dates: start: 20100709, end: 20100709
  20. LANSOPRAZOLE [Suspect]
     Route: 048
     Dates: start: 20100628, end: 20100728
  21. MORPHINE HCL ELIXIR [Suspect]
     Route: 041
     Dates: start: 20100621, end: 20100709
  22. RISPERIDONE [Suspect]
     Route: 048
     Dates: start: 20100702, end: 20100714
  23. ACETAMINOPHEN [Suspect]
     Indication: PYREXIA
     Route: 048
     Dates: start: 20100627, end: 20100716
  24. MIDAZOLAM [Suspect]
     Route: 041
     Dates: start: 20100621, end: 20100621
  25. SPIRONOLACTONE [Suspect]
     Route: 048
     Dates: start: 20100626, end: 20100706
  26. ATROPINE SULFATE [Suspect]
     Route: 041
     Dates: start: 20100617, end: 20100622
  27. ULTIVA [Suspect]
     Route: 042
     Dates: start: 20100621, end: 20100708
  28. ACETAMINOPHEN [Suspect]
     Route: 054
     Dates: start: 20100630, end: 20100716
  29. DIAZEPAM [Suspect]
     Route: 048
     Dates: start: 20100622, end: 20100701
  30. FAMOTIDINE [Suspect]
     Route: 041
     Dates: start: 20100617, end: 20100626
  31. NITRAZEPAM [Suspect]
     Route: 041
     Dates: start: 20100617, end: 20100709
  32. CLINDAMYCIN PHOSPHATE [Suspect]
     Route: 042
     Dates: start: 20100708, end: 20100710
  33. FUROSEMIDE [Suspect]
     Route: 048
     Dates: start: 20100626, end: 20100706
  34. SODIUM PICOSULFATE [Suspect]
     Route: 048
     Dates: start: 20100620, end: 20100620
  35. OMEPRAZOLE [Suspect]
     Route: 041
     Dates: start: 20100716, end: 20100721
  36. HEPARIN SODIUM [Suspect]
     Route: 041
     Dates: start: 20100808, end: 20100812
  37. ROCURONIUM BROMIDE [Suspect]
     Route: 041
     Dates: start: 20100617, end: 20100706
  38. FAMOTIDINE [Suspect]
     Route: 048
     Dates: start: 20100626, end: 20100715
  39. STREPTOCOCCUS FAECALIS [Suspect]
     Route: 048
     Dates: start: 20100711, end: 20100718
  40. PIPERACILLIN SODIUM [Suspect]
     Route: 041
     Dates: start: 20100715, end: 20100716
  41. LACTOBACILLUS CASEI [Suspect]
     Route: 048
     Dates: start: 20100702, end: 20100709
  42. HEPARIN SODIUM [Suspect]
     Route: 041
     Dates: start: 20100617
  43. DEXMEDETOMIDINE HYDROCHLORIDE [Suspect]
     Route: 041
     Dates: start: 20100704, end: 20100705
  44. LIDOCAINE [Suspect]
     Route: 041
     Dates: start: 20100621, end: 20100709
  45. HYALURONATE SODIUM [Suspect]
     Route: 047
     Dates: start: 20100723, end: 20100821

REACTIONS (1)
  - DRUG RASH WITH EOSINOPHILIA AND SYSTEMIC SYMPTOMS [None]
